FAERS Safety Report 5476162-4 (Version None)
Quarter: 2007Q3

REPORT INFORMATION
  Report Type: 
  Country: None (occurrence: None)
  Receive Date: 20070904
  Receipt Date: 20070611
  Transmission Date: 20080115
  Serious: No
  Sender: FDA-Public Use
  Company Number: PHEH2007US08691

PATIENT
  Age: 69 Year
  Sex: Female

DRUGS (3)
  1. ENABLEX [Suspect]
     Indication: URINARY RETENTION
     Dosage: 7.5 MG, QD, ORAL ; 15 MG, QD, ORAL
     Route: 048
     Dates: start: 20070605
  2. TOPROL-XL [Concomitant]
  3. LOTREL [Concomitant]

REACTIONS (1)
  - DRUG INEFFECTIVE [None]
